FAERS Safety Report 9168228 (Version 7)
Quarter: 2014Q2

REPORT INFORMATION
  Report Type: Spontaneous
  Country: US (occurrence: US)
  Receive Date: 20130318
  Receipt Date: 20140520
  Transmission Date: 20141212
  Serious: Yes (Death, Hospitalization, Other)
  Sender: FDA-Public Use
  Company Number: US-B.I. PHARMACEUTICALS,INC./RIDGEFIELD-2013-BI-06884BP

PATIENT
  Age: 68 Year
  Sex: Male
  Weight: 79.38 kg

DRUGS (20)
  1. PRADAXA [Suspect]
     Indication: ATRIAL FIBRILLATION
     Dosage: 300 MG
     Route: 048
     Dates: start: 20110224
  2. METFORMIN [Concomitant]
     Dosage: 1000 MG
     Route: 048
  3. CEFPODOXIME [Concomitant]
     Dosage: 400 MG
     Route: 048
  4. AZITHROMYCIN [Concomitant]
     Dosage: 500 MG
     Route: 048
  5. AZITHROMYCIN [Concomitant]
     Dosage: 250 MG
     Route: 048
  6. TRAZODONE [Concomitant]
     Dosage: 50 MG
     Route: 048
  7. TOPROL XL [Concomitant]
     Dosage: 100 MG
     Route: 048
  8. TYLENOL WITH CODEINE [Concomitant]
     Route: 048
  9. SIMVASTATIN [Concomitant]
     Dosage: 40 MG
     Route: 048
  10. ROPINIROLE [Concomitant]
     Dosage: 9 MG
     Route: 048
  11. OMEPRAZOLE [Concomitant]
     Dosage: 20 MG
     Route: 048
  12. LISINOPRIL [Concomitant]
     Dosage: 20 MG
     Route: 048
  13. LASIX [Concomitant]
     Dosage: 40 MG
     Route: 048
  14. FLOMAX [Concomitant]
     Dosage: 0.4 MG
     Route: 048
  15. COMBIVENT [Concomitant]
     Route: 055
  16. CITALOPRAM [Concomitant]
     Dosage: 40 MG
     Route: 048
  17. BUSPIRONE [Concomitant]
     Dosage: 15 MG
     Route: 048
  18. AVODART [Concomitant]
     Dosage: 0.5 MG
     Route: 048
  19. GABAPENTIN [Concomitant]
     Dosage: 900 MG
     Route: 048
  20. NIACIN [Concomitant]
     Dosage: 1000 MG
     Route: 048

REACTIONS (8)
  - Respiratory failure [Fatal]
  - Anaemia [Unknown]
  - Haematuria [Recovered/Resolved]
  - Renal failure acute [Recovered/Resolved]
  - Thrombocytopenia [Unknown]
  - Haemorrhagic stroke [Unknown]
  - Cerebral haemorrhage [Unknown]
  - Haemoptysis [Unknown]
